FAERS Safety Report 9601166 (Version 3)
Quarter: 2014Q1

REPORT INFORMATION
  Report Type: Spontaneous
  Country: US (occurrence: US)
  Receive Date: 20131004
  Receipt Date: 20140225
  Transmission Date: 20141002
  Serious: No
  Sender: FDA-Public Use
  Company Number: US-AMGEN-USASP2013058981

PATIENT
  Age: 40 Year
  Sex: Female
  Weight: 58.5 kg

DRUGS (5)
  1. ENBREL [Suspect]
     Indication: PSORIATIC ARTHROPATHY
     Dosage: 50 MG, QWK
     Route: 058
     Dates: start: 19990801, end: 20060801
  2. HUMIRA [Concomitant]
     Dosage: UNK
     Route: 065
  3. TEGRETOL [Concomitant]
     Dosage: UNK
     Route: 065
  4. LAMICTAL [Concomitant]
     Dosage: UNK
     Route: 065
  5. DEPAKOTE [Concomitant]
     Dosage: UNK
     Route: 065

REACTIONS (2)
  - Psoriatic arthropathy [Not Recovered/Not Resolved]
  - Drug effect decreased [Not Recovered/Not Resolved]
